FAERS Safety Report 4902330-3 (Version None)
Quarter: 2006Q1

REPORT INFORMATION
  Report Type: 
  Country: None (occurrence: None)
  Receive Date: 20060203
  Receipt Date: 20060203
  Transmission Date: 20060701
  Serious: No
  Sender: FDA-Public Use
  Company Number: None

PATIENT
  Age: 45 Year

DRUGS (1)
  1. PENICILLIN G SODIUM [Suspect]
     Indication: PHARYNGITIS STREPTOCOCCAL
     Dosage: ORAL
     Route: 048
     Dates: start: 20051208, end: 20051208

REACTIONS (1)
  - RASH [None]
